FAERS Safety Report 10623151 (Version 1)
Quarter: 2014Q4

REPORT INFORMATION
  Report Type: Spontaneous
  Country: CH (occurrence: CH)
  Receive Date: 20141203
  Receipt Date: 20141203
  Transmission Date: 20150529
  Serious: Yes (Hospitalization, Disabling)
  Sender: FDA-Public Use
  Company Number: CH-BAYER-2014-175961

PATIENT
  Age: 67 Year
  Sex: Male
  Weight: 74 kg

DRUGS (12)
  1. ASPIRIN CARDIO [Suspect]
     Active Substance: ASPIRIN
     Indication: AORTIC BYPASS
     Dosage: 100 MG, DAILY
     Route: 048
  2. ATENOLOL. [Concomitant]
     Active Substance: ATENOLOL
     Indication: HYPERTENSIVE CARDIOMYOPATHY
     Dosage: 25 MG, QD
     Route: 048
     Dates: end: 20141026
  3. PAZOPANIB [Interacting]
     Active Substance: PAZOPANIB
     Indication: METASTATIC RENAL CELL CARCINOMA
     Dosage: 400 MG, BID
     Route: 048
     Dates: start: 20140612, end: 201410
  4. PAZOPANIB [Interacting]
     Active Substance: PAZOPANIB
     Indication: METASTATIC RENAL CELL CARCINOMA
     Dosage: 400 MG, QD
     Dates: start: 201410, end: 20141028
  5. METFORMIN HYDROCHLORIDE W/VILDAGLIPTIN [Concomitant]
     Indication: TYPE 2 DIABETES MELLITUS
     Dosage: 0.5 DF, BID (1DF= 1000MG METFORMIN AND 50MG VILDAGLIPTIN))
     Route: 048
     Dates: end: 201411
  6. DAONIL [Concomitant]
     Active Substance: GLYBURIDE
     Indication: TYPE 2 DIABETES MELLITUS
     Dosage: 5 MG, QD
     Route: 048
     Dates: end: 201411
  7. NOVALGIN [Concomitant]
     Active Substance: METAMIZOLE SODIUM
     Indication: RENAL CANCER METASTATIC
     Dosage: 40 GTT, TID
     Route: 048
  8. DAFALGAN [Concomitant]
     Active Substance: ACETAMINOPHEN
     Indication: RENAL CANCER METASTATIC
     Dosage: 1 G, TID
     Route: 048
  9. EUTHYROX [Concomitant]
     Active Substance: LEVOTHYROXINE SODIUM
     Indication: BLOOD THYROID STIMULATING HORMONE INCREASED
     Dosage: 50 ?G, QD
     Route: 048
     Dates: start: 201410
  10. SIMCORA [Concomitant]
     Active Substance: SIMVASTATIN
     Indication: DYSLIPIDAEMIA
     Dosage: 10 MG, QD
     Route: 048
  11. DUROGESIC [Concomitant]
     Active Substance: FENTANYL
     Indication: RENAL CANCER METASTATIC
     Dosage: 12.5 ?G, 1 PER 3 DAYS
     Route: 062
  12. LISINOPRIL. [Concomitant]
     Active Substance: LISINOPRIL
     Indication: BLOOD PRESSURE ABNORMAL

REACTIONS (5)
  - Drug interaction [Recovered/Resolved]
  - Blood thyroid stimulating hormone increased [Recovering/Resolving]
  - Oral discomfort [Recovered/Resolved with Sequelae]
  - Nausea [Recovered/Resolved]
  - Basal ganglia haemorrhage [Recovering/Resolving]

NARRATIVE: CASE EVENT DATE: 20140612
